FAERS Safety Report 8539691-2 (Version None)
Quarter: 2012Q3

REPORT INFORMATION
  Report Type: 
  Country: None (occurrence: None)
  Receive Date: 20120726
  Receipt Date: 20120409
  Transmission Date: 20120928
  Serious: No
  Sender: FDA-Public Use
  Company Number: US-ASTRAZENECA-2009UW16761

PATIENT
  Age: 49 Year
  Sex: Female

DRUGS (21)
  1. SEROQUEL [Suspect]
     Route: 048
  2. SEROQUEL [Suspect]
     Route: 048
  3. SEROQUEL [Suspect]
     Route: 048
  4. SEROQUEL [Suspect]
     Route: 048
  5. SEROQUEL [Suspect]
     Indication: MOOD SWINGS
     Route: 048
  6. SEROQUEL [Suspect]
     Indication: SLEEP DISORDER
     Route: 048
  7. SEROQUEL [Suspect]
     Route: 048
  8. SEROQUEL [Suspect]
     Indication: IRRITABILITY
     Route: 048
  9. SEROQUEL [Suspect]
     Indication: FEELING OF RELAXATION
     Route: 048
  10. SEROQUEL [Suspect]
     Route: 048
  11. SEROQUEL [Suspect]
     Route: 048
  12. SEROQUEL [Suspect]
     Route: 048
  13. SEROQUEL [Suspect]
     Indication: DEPRESSION
     Route: 048
  14. SEROQUEL [Suspect]
     Indication: TACHYPHRENIA
     Route: 048
  15. SEROQUEL [Suspect]
     Route: 048
  16. SEROQUEL [Suspect]
     Route: 048
  17. SEROQUEL [Suspect]
     Route: 048
  18. SEROQUEL [Suspect]
     Indication: BIPOLAR DISORDER
     Route: 048
  19. SEROQUEL [Suspect]
     Route: 048
  20. SEROQUEL [Suspect]
     Route: 048
  21. SEROQUEL [Suspect]
     Route: 048

REACTIONS (26)
  - NAUSEA [None]
  - DISTURBANCE IN ATTENTION [None]
  - INFLUENZA LIKE ILLNESS [None]
  - HEADACHE [None]
  - BACK PAIN [None]
  - HYPERHIDROSIS [None]
  - PAIN IN EXTREMITY [None]
  - ACTIVITIES OF DAILY LIVING IMPAIRED [None]
  - CONFUSIONAL STATE [None]
  - TACHYPHRENIA [None]
  - TREMOR [None]
  - THERAPEUTIC RESPONSE UNEXPECTED [None]
  - DEHYDRATION [None]
  - DRUG WITHDRAWAL SYNDROME [None]
  - SYNCOPE [None]
  - DIARRHOEA [None]
  - MALAISE [None]
  - DRY MOUTH [None]
  - INSOMNIA [None]
  - FEELINGS OF WORTHLESSNESS [None]
  - FEELING JITTERY [None]
  - DECREASED APPETITE [None]
  - ASTHENIA [None]
  - VOMITING [None]
  - DIZZINESS [None]
  - INTENTIONAL DRUG MISUSE [None]
